FAERS Safety Report 8244272 (Version 3)
Quarter: 2012Q4

REPORT INFORMATION
  Report Type: 
  Country: JP (occurrence: JP)
  Receive Date: 20111115
  Receipt Date: 20121114
  Transmission Date: 20130627
  Serious: Yes (Other)
  Sender: FDA-Public Use
  Company Number: JP-JNJFOC-20111104383

PATIENT
  Age: 62 Year
  Sex: Male

DRUGS (3)
  1. INVEGA [Suspect]
     Indication: DEPRESSION
     Route: 048
     Dates: start: 201104, end: 201106
  2. RISPERDAL [Suspect]
     Indication: SCHIZOPHRENIA
     Route: 048
  3. DOGMATYL [Concomitant]
     Indication: DEPRESSION
     Route: 048

REACTIONS (9)
  - Depression [Recovered/Resolved]
  - Benign prostatic hyperplasia [Recovered/Resolved]
  - Cataract [Recovered/Resolved]
  - Malaise [Unknown]
  - Libido decreased [Unknown]
  - Asthenia [Unknown]
  - Ejaculation disorder [Not Recovered/Not Resolved]
  - Drug prescribing error [Recovered/Resolved]
  - Off label use [Recovered/Resolved]
